FAERS Safety Report 15111022 (Version 1)
Quarter: 2018Q3

REPORT INFORMATION
  Report Type: Spontaneous
  Country: IT (occurrence: IT)
  Receive Date: 20180705
  Receipt Date: 20180705
  Transmission Date: 20181010
  Serious: Yes (Hospitalization)
  Sender: FDA-Public Use
  Company Number: IT-BAYER-2018-121031

PATIENT
  Age: 76 Year
  Sex: Female

DRUGS (7)
  1. ATORVASTATIN [Concomitant]
     Active Substance: ATORVASTATIN
     Dosage: 40 MG, UNK
     Route: 048
  2. RAMIPRIL. [Concomitant]
     Active Substance: RAMIPRIL
     Dosage: 5 MG, UNK
     Route: 048
  3. CARDIOASPIRIN 100 MG [Suspect]
     Active Substance: ASPIRIN
     Indication: ISCHAEMIC HEART DISEASE PROPHYLAXIS
     Dosage: 100 MG, QD
     Route: 048
  4. BISOPROLOL HEMIFUMARATE [Concomitant]
     Active Substance: BISOPROLOL FUMARATE
     Indication: CARDIAC FAILURE
     Dosage: 5 MG, UNK
     Route: 048
  5. COUMADIN [Concomitant]
     Active Substance: WARFARIN SODIUM
     Dosage: UNK
     Route: 048
  6. PANTOPRAZOLE SODIUM. [Concomitant]
     Active Substance: PANTOPRAZOLE SODIUM
     Indication: PROPHYLAXIS AGAINST GASTROINTESTINAL ULCER
     Dosage: 20 MG, UNK
     Route: 048
  7. CARVASIN [Concomitant]
     Active Substance: ISOSORBIDE DINITRATE
     Dosage: 5 MG, UNK
     Route: 060

REACTIONS (3)
  - Asthenia [Unknown]
  - Melaena [Unknown]
  - Gastric disorder [Unknown]

NARRATIVE: CASE EVENT DATE: 20180604
